FAERS Safety Report 8211270-6 (Version None)
Quarter: 2012Q1

REPORT INFORMATION
  Report Type: 
  Country: None (occurrence: None)
  Receive Date: 20120315
  Receipt Date: 20120313
  Transmission Date: 20120608
  Serious: Yes (Other)
  Sender: FDA-Public Use
  Company Number: US-PFIZER INC-2012066741

PATIENT
  Sex: Male
  Weight: 99.773 kg

DRUGS (13)
  1. NITROGLYCERIN [Concomitant]
     Dosage: UNK, AS NEEDED
  2. ACETYLSALICYLIC ACID [Concomitant]
     Dosage: 325 MG, UNK
  3. SPIRONOLACTONE [Concomitant]
     Dosage: 50 MG, UNK
  4. LEVOTHROID [Concomitant]
     Dosage: 137 UG, UNK
  5. COREG [Concomitant]
     Dosage: 25 MG, 2X/DAY
  6. HYZAAR [Concomitant]
     Dosage: [LOSARTAN 50]/[HYDROCHLOROTHIAZIDE 12.5 MG], 1X/DAY
  7. PLAVIX [Concomitant]
     Dosage: 75 MG, UNK
  8. AMIODARONE [Concomitant]
     Dosage: 200 MG, UNK
  9. WELCHOL [Concomitant]
     Dosage: 50 MG, 2X/DAY
  10. FOLTX [Concomitant]
     Dosage: 2 MG, UNK
  11. LIPITOR [Suspect]
     Indication: BLOOD CHOLESTEROL INCREASED
     Dosage: 40 MG, 1X/DAY
     Route: 048
     Dates: start: 20091001
  12. NEXIUM [Concomitant]
     Dosage: 40 MG, UNK
  13. TRICOR [Concomitant]
     Dosage: 145 MG, UNK

REACTIONS (1)
  - TYPE 2 DIABETES MELLITUS [None]
